FAERS Safety Report 23542957 (Version 1)
Quarter: 2024Q1

REPORT INFORMATION
  Report Type: Spontaneous
  Country: FR (occurrence: FR)
  Receive Date: 20240220
  Receipt Date: 20240220
  Transmission Date: 20240410
  Serious: Yes (Hospitalization, Other)
  Sender: FDA-Public Use
  Company Number: FR-CELLTRION INC.-2024FR003727

PATIENT

DRUGS (1)
  1. BEVACIZUMAB [Suspect]
     Active Substance: BEVACIZUMAB
     Indication: Cervix carcinoma stage IV
     Dosage: UNK
     Route: 042
     Dates: start: 20221012

REACTIONS (2)
  - Acute coronary syndrome [Recovered/Resolved with Sequelae]
  - Coronary arterial stent insertion [Recovered/Resolved with Sequelae]

NARRATIVE: CASE EVENT DATE: 20240108
